FAERS Safety Report 16121183 (Version 1)
Quarter: 2019Q1

REPORT INFORMATION
  Report Type: Spontaneous
  Country: CZ (occurrence: CZ)
  Receive Date: 20190327
  Receipt Date: 20190327
  Transmission Date: 20190418
  Serious: Yes (Other)
  Sender: FDA-Public Use
  Company Number: CZ-ACCORD-115608

PATIENT
  Sex: Male

DRUGS (2)
  1. TEYSUNO [Suspect]
     Active Substance: GIMERACIL\OTERACIL\TEGAFUR
     Indication: METASTASES TO LIVER
     Dosage: UNK
     Route: 048
     Dates: start: 201611, end: 201701
  2. CISPLATIN. [Suspect]
     Active Substance: CISPLATIN
     Indication: METASTASES TO LIVER
     Dosage: UNK
     Route: 065
     Dates: start: 201611, end: 201701

REACTIONS (2)
  - Malignant neoplasm progression [Recovering/Resolving]
  - Metastases to liver [Recovering/Resolving]

NARRATIVE: CASE EVENT DATE: 201701
